FAERS Safety Report 9289297 (Version 2)
Quarter: 2013Q2

REPORT INFORMATION
  Report Type: Spontaneous
  Country: ES (occurrence: ES)
  Receive Date: 20130514
  Receipt Date: 20130612
  Transmission Date: 20140414
  Serious: Yes (Other)
  Sender: FDA-Public Use
  Company Number: ES-BRISTOL-MYERS SQUIBB COMPANY-18865337

PATIENT
  Age: 47 Year
  Sex: Male

DRUGS (3)
  1. BARACLUDE TABS 0.5 MG [Suspect]
     Indication: HEPATITIS B
     Route: 048
     Dates: start: 2006, end: 20130603
  2. BARACLUDE TABS 0.5 MG [Suspect]
     Indication: VIRAEMIA
     Route: 048
     Dates: start: 2006, end: 20130603
  3. BARACLUDE TABS 0.5 MG [Suspect]
     Indication: TRANSAMINASES INCREASED
     Route: 048
     Dates: start: 2006, end: 20130603

REACTIONS (2)
  - Osteolysis [Unknown]
  - Vitamin D deficiency [Unknown]
